FAERS Safety Report 6136430-X (Version None)
Quarter: 2009Q1

REPORT INFORMATION
  Report Type: 
  Country: None (occurrence: None)
  Receive Date: 20090325
  Receipt Date: 20090317
  Transmission Date: 20090719
  Serious: Yes (Other)
  Sender: FDA-Public Use
  Company Number: CERZ-1000562

PATIENT
  Age: 4 Year
  Sex: Male
  Weight: 12.4 kg

DRUGS (2)
  1. CEREZYME [Suspect]
     Indication: GAUCHER'S DISEASE
     Dosage: 60 U/KG, Q2W, INTRAVENOUS, 60 U/KG, Q2W, INTRAVENOUS, 120 U/KG, Q2W, INTRAVENOUS
     Route: 042
     Dates: start: 20060830, end: 20070301
  2. CEREZYME [Suspect]
     Indication: GAUCHER'S DISEASE
     Dosage: 60 U/KG, Q2W, INTRAVENOUS, 60 U/KG, Q2W, INTRAVENOUS, 120 U/KG, Q2W, INTRAVENOUS
     Route: 042
     Dates: start: 20070301

REACTIONS (8)
  - ADENOIDECTOMY [None]
  - ADHESION [None]
  - BRONCHITIS [None]
  - LUNG INFECTION [None]
  - RESPIRATORY ARREST [None]
  - STAPHYLOCOCCAL INFECTION [None]
  - TONSILLECTOMY [None]
  - UPPER RESPIRATORY TRACT INFECTION [None]
